FAERS Safety Report 15385228 (Version 1)
Quarter: 2018Q3

REPORT INFORMATION
  Report Type: Spontaneous
  Country: US (occurrence: US)
  Receive Date: 20180914
  Receipt Date: 20180914
  Transmission Date: 20181010
  Serious: No
  Sender: FDA-Public Use
  Company Number: US-SA-2018SA246538

PATIENT
  Age: 65 Year
  Sex: Female

DRUGS (4)
  1. LANTUS SOLOSTAR [Suspect]
     Active Substance: INSULIN GLARGINE
     Indication: TYPE 2 DIABETES MELLITUS
     Dosage: 8 IU, QD
     Route: 065
  2. METHOTREXATE. [Concomitant]
     Active Substance: METHOTREXATE
     Indication: ARTHRITIS
     Dosage: UNK UNK, UNK
     Route: 065
  3. PREDNISONE. [Concomitant]
     Active Substance: PREDNISONE
  4. HUMALOG [Concomitant]
     Active Substance: INSULIN LISPRO
     Dosage: 8 IU PER MEALS

REACTIONS (5)
  - Glycosylated haemoglobin increased [Unknown]
  - Drug interaction [Unknown]
  - Vulvovaginal burning sensation [Unknown]
  - Fall [Unknown]
  - Blood glucose decreased [Unknown]
